FAERS Safety Report 9670355 (Version 1)
Quarter: 2013Q4

REPORT INFORMATION
  Report Type: Spontaneous
  Country: KR (occurrence: None)
  Receive Date: 20131104
  Receipt Date: 20131104
  Transmission Date: 20140711
  Serious: Yes (Death, Hospitalization)
  Sender: FDA-Public Use
  Company Number: B0938258A

PATIENT
  Age: 82 Year
  Sex: Female

DRUGS (9)
  1. CIMETIDINE [Suspect]
     Indication: SPINAL COMPRESSION FRACTURE
  2. METFORMIN HYDROCHLORIDE [Suspect]
     Indication: TYPE 2 DIABETES MELLITUS
  3. GLICLAZIDE [Concomitant]
  4. VOGLIBOSE [Concomitant]
  5. FENOFIBRATE [Concomitant]
  6. ATORVASTATIN CALCIUM [Concomitant]
  7. LORAZEPAM [Concomitant]
  8. THIOCTIC ACID [Concomitant]
  9. DEXIBUPROFEN [Concomitant]

REACTIONS (8)
  - Pancreatitis acute [None]
  - Lactic acidosis [None]
  - Renal failure acute [None]
  - Metabolic acidosis [None]
  - Oliguria [None]
  - Sepsis [None]
  - Pneumonia aspiration [None]
  - Toxicity to various agents [None]
